FAERS Safety Report 6982126-1 (Version None)
Quarter: 2010Q3

REPORT INFORMATION
  Report Type: 
  Country: None (occurrence: None)
  Receive Date: 20100914
  Receipt Date: 20091118
  Transmission Date: 20110219
  Serious: No
  Sender: FDA-Public Use
  Company Number: US-PFIZER INC-2009300907

PATIENT
  Sex: Female

DRUGS (1)
  1. LYRICA [Suspect]
     Indication: MIGRAINE
     Dosage: UNK
     Dates: start: 20090501

REACTIONS (8)
  - CRYING [None]
  - DIARRHOEA [None]
  - HEADACHE [None]
  - INFLUENZA LIKE ILLNESS [None]
  - MALAISE [None]
  - THINKING ABNORMAL [None]
  - VISUAL IMPAIRMENT [None]
  - WITHDRAWAL SYNDROME [None]
